FAERS Safety Report 5639323-7 (Version None)
Quarter: 2008Q1

REPORT INFORMATION
  Report Type: 
  Country: None (occurrence: None)
  Receive Date: 20080226
  Receipt Date: 20080214
  Transmission Date: 20080703
  Serious: Yes (Other)
  Sender: FDA-Public Use
  Company Number: GB-PFIZER INC-2008014645

PATIENT
  Age: 41 Year
  Sex: Female
  Weight: 104 kg

DRUGS (3)
  1. CHANTIX [Suspect]
     Indication: SMOKING CESSATION THERAPY
     Route: 048
     Dates: start: 20080102, end: 20080114
  2. METOPROLOL TARTRATE [Concomitant]
     Indication: ANXIETY
     Route: 048
  3. METOPROLOL TARTRATE [Concomitant]
     Indication: HYPERTENSION

REACTIONS (7)
  - ABNORMAL DREAMS [None]
  - ANXIETY [None]
  - DEPRESSION [None]
  - NAUSEA [None]
  - PANIC ATTACK [None]
  - SLEEP DISORDER [None]
  - SUICIDAL IDEATION [None]
